FAERS Safety Report 18783590 (Version 1)
Quarter: 2021Q1

REPORT INFORMATION
  Report Type: Other
  Country: CN (occurrence: CN)
  Receive Date: 20210125
  Receipt Date: 20210125
  Transmission Date: 20210419
  Serious: Yes (Other)
  Sender: FDA-Public Use
  Company Number: CN-ROCHE-2749140

PATIENT
  Sex: Female

DRUGS (1)
  1. BEVACIZUMAB. [Suspect]
     Active Substance: BEVACIZUMAB
     Indication: COLORECTAL CANCER
     Route: 042

REACTIONS (13)
  - Vomiting [Unknown]
  - Thrombocytopenia [Unknown]
  - Oedema peripheral [Unknown]
  - Diarrhoea [Unknown]
  - Nausea [Unknown]
  - Stomatitis [Unknown]
  - Decreased appetite [Unknown]
  - Proteinuria [Unknown]
  - Hypoalbuminaemia [Unknown]
  - Skin toxicity [Unknown]
  - Fatigue [Unknown]
  - Dysphonia [Unknown]
  - Hepatic encephalopathy [Unknown]
